FAERS Safety Report 8396787-6 (Version None)
Quarter: 2012Q2

REPORT INFORMATION
  Report Type: 
  Country: None (occurrence: None)
  Receive Date: 20120530
  Receipt Date: 20080919
  Transmission Date: 20120825
  Serious: Yes (Other)
  Sender: FDA-Public Use
  Company Number: PHHY2005SG007153

PATIENT
  Sex: Male

DRUGS (2)
  1. GLEEVEC [Suspect]
     Dosage: 300 MG, UNK
     Dates: start: 20060201
  2. GLEEVEC [Suspect]
     Indication: GASTROINTESTINAL STROMAL TUMOUR
     Dosage: 400 MG, UNK
     Dates: start: 20050811, end: 20080919

REACTIONS (10)
  - HAEMORRHOIDS [None]
  - DIARRHOEA [None]
  - FLUID RETENTION [None]
  - HAEMORRHOIDAL HAEMORRHAGE [None]
  - PAIN [None]
  - NAUSEA [None]
  - DRUG INEFFECTIVE [None]
  - RASH [None]
  - ARTHRALGIA [None]
  - OEDEMA PERIPHERAL [None]
